FAERS Safety Report 8472613-1 (Version None)
Quarter: 2012Q2

REPORT INFORMATION
  Report Type: 
  Country: None (occurrence: None)
  Receive Date: 20120627
  Receipt Date: 20120322
  Transmission Date: 20120825
  Serious: No
  Sender: FDA-Public Use
  Company Number: US-AMGEN-USASP2012019398

PATIENT
  Age: 62 Year
  Sex: Female
  Weight: 49.887 kg

DRUGS (3)
  1. REMICADE [Concomitant]
     Dosage: UNK UNK, Q8WK
     Route: 058
     Dates: start: 19990101
  2. PROCRIT [Suspect]
     Indication: ANAEMIA
     Dosage: UNK UNK, QWK
     Route: 058
     Dates: start: 20090101, end: 20120101
  3. REMICADE [Suspect]
     Indication: CROHN'S DISEASE
     Dosage: UNK UNK, Q8WK
     Route: 058
     Dates: start: 19990101

REACTIONS (7)
  - CONFUSIONAL STATE [None]
  - GAIT DISTURBANCE [None]
  - SERUM FERRITIN DECREASED [None]
  - HAEMOGLOBIN DECREASED [None]
  - DYSPNOEA [None]
  - MEMORY IMPAIRMENT [None]
  - FEELING ABNORMAL [None]
